FAERS Safety Report 11446731 (Version 1)
Quarter: 2015Q3

REPORT INFORMATION
  Report Type: Spontaneous
  Country: US (occurrence: US)
  Receive Date: 20150831
  Receipt Date: 20150831
  Transmission Date: 20151125
  Serious: No
  Sender: FDA-Public Use
  Company Number: US-ELI_LILLY_AND_COMPANY-US200811001961

PATIENT
  Sex: Female

DRUGS (2)
  1. CYMBALTA [Suspect]
     Active Substance: DULOXETINE HYDROCHLORIDE
     Indication: DEPRESSION
     Dosage: 60 MG, UNK
     Dates: start: 2006
  2. CYMBALTA [Suspect]
     Active Substance: DULOXETINE HYDROCHLORIDE
     Dosage: 30 MG, UNK

REACTIONS (13)
  - Vertigo [Recovering/Resolving]
  - Ear disorder [Recovering/Resolving]
  - Constipation [Recovering/Resolving]
  - Asthenia [Recovering/Resolving]
  - Drug withdrawal syndrome [Recovering/Resolving]
  - Hypoaesthesia [Recovering/Resolving]
  - Memory impairment [Recovering/Resolving]
  - Mood swings [Recovering/Resolving]
  - Abdominal distension [Recovering/Resolving]
  - Confusional state [Recovering/Resolving]
  - Dizziness [Recovering/Resolving]
  - Diarrhoea [Recovering/Resolving]
  - Blood pressure abnormal [Recovering/Resolving]
